FAERS Safety Report 23055040 (Version 9)
Quarter: 2024Q3

REPORT INFORMATION
  Report Type: Spontaneous
  Country: US (occurrence: US)
  Receive Date: 20231011
  Receipt Date: 20240927
  Transmission Date: 20241017
  Serious: Yes (Other)
  Sender: INCYTE
  Company Number: US-INCYTE CORPORATION-2023IN010280

PATIENT

DRUGS (7)
  1. JAKAFI [Suspect]
     Active Substance: RUXOLITINIB
     Indication: Juvenile idiopathic arthritis
     Dosage: 5 MILLIGRAM, BID
     Route: 048
     Dates: start: 20230917
  2. JAKAFI [Suspect]
     Active Substance: RUXOLITINIB
     Dosage: 5 MILLIGRAM, BID
     Route: 048
     Dates: start: 20230917
  3. JAKAFI [Suspect]
     Active Substance: RUXOLITINIB
     Dosage: 5 MILLIGRAM, BID
     Route: 048
     Dates: start: 20230917
  4. JAKAFI [Suspect]
     Active Substance: RUXOLITINIB
     Dosage: 25 UNK, BID
     Route: 048
     Dates: start: 202406
  5. LUPKYNIS [Suspect]
     Active Substance: VOCLOSPORIN
     Indication: Juvenile idiopathic arthritis
     Dosage: 23.7 MILLIGRAM, BID
     Route: 048
     Dates: start: 20231011
  6. CYCLOSPORINE [Concomitant]
     Active Substance: CYCLOSPORINE
     Indication: Product used for unknown indication
     Dosage: 100 UNK, BID
     Route: 065
     Dates: start: 202310
  7. HYDROCORTISONE [Concomitant]
     Active Substance: HYDROCORTISONE\HYDROCORTISONE ACETATE
     Indication: Product used for unknown indication
     Dosage: 40-100 (UNITS NOT REPORTED)
     Route: 065

REACTIONS (16)
  - Haemophagocytic lymphohistiocytosis [Unknown]
  - Still^s disease [Not Recovered/Not Resolved]
  - Hypersensitivity [Unknown]
  - Stress [Unknown]
  - Depression [Unknown]
  - Diarrhoea [Unknown]
  - Condition aggravated [Not Recovered/Not Resolved]
  - Dizziness [Unknown]
  - Constipation [Unknown]
  - Pollakiuria [Unknown]
  - Fatigue [Unknown]
  - Dyspnoea exertional [Unknown]
  - Emotional disorder [Unknown]
  - Nausea [Unknown]
  - Vomiting [Unknown]
  - Off label use [Unknown]

NARRATIVE: CASE EVENT DATE: 20230917
